FAERS Safety Report 6446404-7 (Version None)
Quarter: 2009Q4

REPORT INFORMATION
  Report Type: 
  Country: None (occurrence: None)
  Receive Date: 20091116
  Receipt Date: 20091109
  Transmission Date: 20100525
  Serious: Yes (Hospitalization, Other)
  Sender: FDA-Public Use
  Company Number: 2009PL000299

PATIENT
  Age: 50 Year
  Sex: Male

DRUGS (3)
  1. IMURAN [Suspect]
     Indication: RELAPSING-REMITTING MULTIPLE SCLEROSIS
     Dates: start: 20070601, end: 20070701
  2. SOLU-MEDROL [Suspect]
     Dosage: IV
     Route: 042
  3. BETASERON [Suspect]
     Indication: RELAPSING-REMITTING MULTIPLE SCLEROSIS
     Dosage: 9 MIU; QOD; SQ
     Route: 058
     Dates: start: 20060528

REACTIONS (11)
  - ABASIA [None]
  - APHASIA [None]
  - ARTHRALGIA [None]
  - CENTRAL NERVOUS SYSTEM LESION [None]
  - INGROWING NAIL [None]
  - MENTAL DISORDER [None]
  - OPTIC NEURITIS [None]
  - OSTEONECROSIS [None]
  - PAIN [None]
  - PLATELET COUNT DECREASED [None]
  - PYREXIA [None]
